FAERS Safety Report 6240739-9 (Version None)
Quarter: 2009Q2

REPORT INFORMATION
  Report Type: 
  Country: None (occurrence: None)
  Receive Date: 20090623
  Receipt Date: 20090617
  Transmission Date: 20091009
  Serious: No
  Sender: FDA-Public Use
  Company Number: DE-AVENTIS-200911460DE

PATIENT
  Age: 56 Year
  Sex: Female
  Weight: 60 kg

DRUGS (5)
  1. ARAVA [Suspect]
     Route: 048
     Dates: start: 20080822, end: 20090325
  2. METEX [Concomitant]
     Route: 058
     Dates: start: 20080507
  3. DECORTIN H [Concomitant]
     Route: 048
     Dates: start: 20070327
  4. BISOPROLOL [Concomitant]
     Route: 048
  5. BLOPRESS PLUS [Concomitant]
     Dosage: DOSE: 8/6.25 MG PER DAY
     Route: 048

REACTIONS (5)
  - LIVER FUNCTION TEST ABNORMAL [None]
  - MYOSITIS [None]
  - POLYMYOSITIS [None]
  - PYREXIA [None]
  - SKIN DISORDER [None]
